FAERS Safety Report 15668967 (Version 1)
Quarter: 2018Q4

REPORT INFORMATION
  Report Type: Spontaneous
  Country: FR (occurrence: FR)
  Receive Date: 20181129
  Receipt Date: 20181129
  Transmission Date: 20190205
  Serious: Yes (Hospitalization, Other)
  Sender: FDA-Public Use
  Company Number: FR-ZYDUS-030747

PATIENT
  Sex: Female

DRUGS (2)
  1. PAROXETINE. [Interacting]
     Active Substance: PAROXETINE
     Indication: DEPRESSION
     Dosage: 20 MG, QD
     Route: 048
     Dates: start: 2006
  2. TRAMADOL. [Suspect]
     Active Substance: TRAMADOL
     Indication: PRODUCT USED FOR UNKNOWN INDICATION

REACTIONS (9)
  - Rash macular [Unknown]
  - Paralysis [Unknown]
  - Labelled drug-drug interaction medication error [Unknown]
  - Angioedema [Unknown]
  - Medication error [Unknown]
  - Dyspnoea [Recovering/Resolving]
  - Blister [Unknown]
  - Swollen tongue [Unknown]
  - Hot flush [Unknown]

NARRATIVE: CASE EVENT DATE: 20180930
